FAERS Safety Report 17830930 (Version 3)
Quarter: 2020Q4

REPORT INFORMATION
  Report Type: Spontaneous
  Country: US (occurrence: US)
  Receive Date: 20200527
  Receipt Date: 20201201
  Transmission Date: 20210113
  Serious: Yes (Hospitalization, Other)
  Sender: FDA-Public Use
  Company Number: US-AMNEAL PHARMACEUTICALS-2020-AMRX-01485

PATIENT
  Age: 51 Year
  Sex: Female
  Weight: 96 kg

DRUGS (18)
  1. ELAGOLIX [Suspect]
     Active Substance: ELAGOLIX
     Indication: UTERINE LEIOMYOMA
     Dosage: 300 MILLIGRAM, BID
     Route: 048
     Dates: start: 20190221
  2. VITAMIN C [Concomitant]
     Active Substance: ASCORBIC ACID
     Indication: SUPPLEMENTATION THERAPY
     Dosage: 500 MILLIEQUIVALENT, QD
     Route: 048
     Dates: start: 2000
  3. VITAMIN B12 [Concomitant]
     Active Substance: CYANOCOBALAMIN
     Indication: SUPPLEMENTATION THERAPY
     Dosage: 500 MILLIGRAM, QD
     Route: 048
     Dates: start: 2000
  4. VICODIN [Concomitant]
     Active Substance: ACETAMINOPHEN\HYDROCODONE BITARTRATE
     Indication: MUSCLE STRAIN
     Dosage: 3 DOSAGE FORM, QD
     Route: 048
     Dates: start: 20200328, end: 20200331
  5. ACTIVELLA [Suspect]
     Active Substance: ESTRADIOL\NORETHINDRONE ACETATE
     Dosage: 1 DOSAGE FORM, DAILY
     Route: 048
     Dates: start: 20200131, end: 20200306
  6. FLAXSEED [Concomitant]
     Active Substance: FLAX SEED
     Indication: SUPPLEMENTATION THERAPY
     Dosage: 1 CAPSULES, QD
     Route: 048
     Dates: start: 201801
  7. KETOROLAC [Concomitant]
     Active Substance: KETOROLAC TROMETHAMINE
     Indication: MUSCLE STRAIN
     Dosage: 20 MILLIGRAM, QD
     Route: 048
     Dates: start: 20200327, end: 20200327
  8. ACTIVELLA [Suspect]
     Active Substance: ESTRADIOL\NORETHINDRONE ACETATE
     Indication: UTERINE LEIOMYOMA
     Dosage: 1 DOSAGE FORM, DAILY
     Route: 048
     Dates: start: 20190221
  9. KETOROLAC [Concomitant]
     Active Substance: KETOROLAC TROMETHAMINE
     Indication: INTERVERTEBRAL DISC PROTRUSION
  10. ALEVE [Concomitant]
     Active Substance: NAPROXEN SODIUM
     Indication: DYSMENORRHOEA
     Dosage: 325 MILLIGRAM, QD
     Route: 048
     Dates: start: 1990
  11. FERROUS SULFATE. [Concomitant]
     Active Substance: FERROUS SULFATE
     Indication: ANAEMIA
     Dosage: 2 DOSAGE FORM, QD (325 MG,2 IN 1 D)
     Route: 048
     Dates: start: 20181219
  12. ACTIVELLA [Suspect]
     Active Substance: ESTRADIOL\NORETHINDRONE ACETATE
     Dosage: 1 DOSAGE FORM, DAILY
     Route: 048
     Dates: start: 20200601
  13. ELAGOLIX [Suspect]
     Active Substance: ELAGOLIX
     Dosage: 300 MILLIGRAM, BID
     Route: 048
     Dates: start: 20200131, end: 20200306
  14. CYCLOBENZAPRINE. [Concomitant]
     Active Substance: CYCLOBENZAPRINE
     Indication: MUSCLE STRAIN
     Dosage: 10 MILLIGRAM, QD
     Route: 048
     Dates: start: 20200328, end: 20200411
  15. ELAGOLIX [Suspect]
     Active Substance: ELAGOLIX
     Dosage: 300 UNK
     Route: 065
     Dates: start: 20200601
  16. IBUPROFEN. [Concomitant]
     Active Substance: IBUPROFEN
     Indication: DYSMENORRHOEA
     Dosage: UNK, AS REQUIRED
     Route: 048
     Dates: start: 2016
  17. VITAMIN D NOS [Concomitant]
     Active Substance: VITAMIN D NOS
     Indication: VITAMIN D DECREASED
     Dosage: 2 DOSAGE FORM, QD (2000 IU,2 IN 1 D)
     Route: 048
     Dates: start: 20181201
  18. MEDROL [Concomitant]
     Active Substance: METHYLPREDNISOLONE
     Indication: MUSCLE STRAIN
     Dosage: 1 DOSAGE FORM, QD
     Route: 048
     Dates: start: 20200328, end: 20200401

REACTIONS (1)
  - Intervertebral disc protrusion [Not Recovered/Not Resolved]

NARRATIVE: CASE EVENT DATE: 20200408
